FAERS Safety Report 9386602 (Version 1)
Quarter: 2013Q3

REPORT INFORMATION
  Report Type: Spontaneous
  Country: US (occurrence: None)
  Receive Date: 20130703
  Receipt Date: 20130703
  Transmission Date: 20140515
  Serious: No
  Sender: FDA-Public Use
  Company Number: None

PATIENT
  Age: 85 Year
  Sex: Female
  Weight: 73.48 kg

DRUGS (1)
  1. RISPERIDONE [Suspect]
     Route: 048
     Dates: start: 20130627, end: 20130702

REACTIONS (2)
  - Dementia Alzheimer^s type [None]
  - Dementia [None]
